FAERS Safety Report 12656639 (Version 1)
Quarter: 2016Q3

REPORT INFORMATION
  Report Type: Spontaneous
  Country: US (occurrence: US)
  Receive Date: 20160816
  Receipt Date: 20160816
  Transmission Date: 20161109
  Serious: No
  Sender: FDA-Public Use
  Company Number: US-PERRIGO-16US000548

PATIENT
  Sex: Female

DRUGS (3)
  1. VITAMINS                           /90003601/ [Concomitant]
     Active Substance: VITAMINS
     Indication: PRODUCT USED FOR UNKNOWN INDICATION
     Dosage: UNK
     Route: 048
  2. LORATADINE. [Suspect]
     Active Substance: LORATADINE
     Indication: ACCIDENTAL EXPOSURE TO PRODUCT
  3. LORATADINE. [Suspect]
     Active Substance: LORATADINE
     Indication: HEADACHE
     Dosage: 10 MG, TWICE WITHIN 2 HOURS
     Route: 048
     Dates: start: 20160119, end: 20160119

REACTIONS (2)
  - Extra dose administered [Recovered/Resolved]
  - Off label use [Recovered/Resolved]

NARRATIVE: CASE EVENT DATE: 20160119
